FAERS Safety Report 4894357-5 (Version None)
Quarter: 2006Q1

REPORT INFORMATION
  Report Type: 
  Country: None (occurrence: None)
  Receive Date: 20060127
  Receipt Date: 20060119
  Transmission Date: 20060701
  Serious: Yes (Hospitalization)
  Sender: FDA-Public Use
  Company Number: US-MERCK-0601USA02311

PATIENT
  Age: 75 Year
  Sex: Male

DRUGS (7)
  1. TRUSOPT [Suspect]
     Indication: GLAUCOMA
     Route: 047
     Dates: start: 20051101
  2. ALPHAGAN [Concomitant]
     Route: 065
  3. DIABETA [Concomitant]
     Route: 065
  4. PILOCARPINE [Concomitant]
     Route: 065
  5. XALATAN [Concomitant]
     Route: 065
  6. POTASSIUM (UNSPECIFIED) [Concomitant]
     Route: 065
  7. LASIX [Concomitant]
     Route: 065

REACTIONS (4)
  - DIABETES MELLITUS [None]
  - INSOMNIA [None]
  - MALNUTRITION [None]
  - OVERDOSE [None]
